FAERS Safety Report 13347213 (Version 1)
Quarter: 2017Q1

REPORT INFORMATION
  Report Type: Spontaneous
  Country: US (occurrence: US)
  Receive Date: 20170317
  Receipt Date: 20170317
  Transmission Date: 20170428
  Serious: Yes (Life-Threatening)
  Sender: FDA-Public Use
  Company Number: US-DEPOMED, INC.-US-2017DEP000526

PATIENT
  Sex: Female

DRUGS (6)
  1. ETOMIDATE. [Suspect]
     Active Substance: ETOMIDATE
     Indication: INDUCTION OF ANAESTHESIA
     Dosage: 0.2 MG/KG, UNK
  2. NEOSTIGMINE [Suspect]
     Active Substance: NEOSTIGMINE
     Indication: NEUROMUSCULAR BLOCKADE REVERSAL
     Dosage: 0.05 MG/KG, UNK
  3. ISOFLURANE. [Suspect]
     Active Substance: ISOFLURANE
     Indication: MAINTENANCE OF ANAESTHESIA
     Dosage: 0.8 MINIMUM ALVEOLAR CONCENTRATION, UNK
  4. GLYCOPYRROLATE                     /00196202/ [Suspect]
     Active Substance: GLYCOPYRROLATE
     Indication: NEUROMUSCULAR BLOCKADE REVERSAL
     Dosage: 0.005 MG/KG, UNK
  5. FENTANYL. [Suspect]
     Active Substance: FENTANYL
     Indication: INDUCTION OF ANAESTHESIA
     Dosage: 2 MCG/KG, UNK
  6. VECURONIUM [Suspect]
     Active Substance: VECURONIUM BROMIDE
     Indication: INDUCTION OF ANAESTHESIA
     Dosage: 0.1 MG/KG, UNK

REACTIONS (2)
  - Cardiac arrest [Recovered/Resolved]
  - Foetal exposure during pregnancy [Recovered/Resolved]
